FAERS Safety Report 10274075 (Version 1)
Quarter: 2014Q3

REPORT INFORMATION
  Report Type: Spontaneous
  Country: US (occurrence: US)
  Receive Date: 20140702
  Receipt Date: 20140702
  Transmission Date: 20150326
  Serious: No
  Sender: FDA-Public Use
  Company Number: US-BAYER-2014-096005

PATIENT
  Age: 36 Year
  Sex: Female

DRUGS (3)
  1. COPAXONE [Concomitant]
     Active Substance: GLATIRAMER ACETATE
     Indication: MULTIPLE SCLEROSIS
     Dosage: 20 MG, UNK
  2. COPAXONE [Concomitant]
     Active Substance: GLATIRAMER ACETATE
     Indication: MULTIPLE SCLEROSIS
     Dosage: 20 MG, UNK
     Route: 030
     Dates: start: 20111212
  3. MIRENA [Suspect]
     Active Substance: LEVONORGESTREL
     Indication: UTERINE LEIOMYOMA
     Dosage: 20 MCG/24HR, CONT
     Route: 015
     Dates: start: 20140506, end: 20140519

REACTIONS (7)
  - Off label use [None]
  - Device expulsion [Recovered/Resolved]
  - Feeling hot [Recovered/Resolved]
  - Erythema [Recovered/Resolved]
  - Chest discomfort [Recovered/Resolved]
  - Dizziness [Recovered/Resolved]
  - Dyspnoea [Recovered/Resolved]

NARRATIVE: CASE EVENT DATE: 201405
